FAERS Safety Report 4459790-4 (Version None)
Quarter: 2004Q3

REPORT INFORMATION
  Report Type: 
  Country: None (occurrence: None)
  Receive Date: 20040928
  Receipt Date: 20040723
  Transmission Date: 20050211
  Serious: No
  Sender: FDA-Public Use
  Company Number: US-BRISTOL-MYERS SQUIBB COMPANY-12649547

PATIENT
  Sex: Male
  Weight: 67 kg

DRUGS (1)
  1. KENALOG-40 [Suspect]
     Indication: ARTHRALGIA
     Route: 014
     Dates: start: 20040330, end: 20040514

REACTIONS (3)
  - ADRENAL SUPPRESSION [None]
  - ANOREXIA [None]
  - ASTHENIA [None]
